FAERS Safety Report 9672019 (Version 2)
Quarter: 2013Q4

REPORT INFORMATION
  Report Type: Spontaneous
  Country: FR (occurrence: FR)
  Receive Date: 20131106
  Receipt Date: 20131106
  Transmission Date: 20140711
  Serious: Yes (Death, Life-Threatening)
  Sender: FDA-Public Use
  Company Number: FR-GLAXOSMITHKLINE-B0719469A

PATIENT
  Age: 80 Year
  Sex: Male

DRUGS (6)
  1. ARIXTRA [Suspect]
     Indication: PRODUCT USED FOR UNKNOWN INDICATION
     Dosage: 7.5MG PER DAY
     Route: 058
     Dates: end: 20110218
  2. KARDEGIC [Suspect]
     Indication: PRODUCT USED FOR UNKNOWN INDICATION
     Route: 048
     Dates: end: 20110218
  3. CORDARONE [Concomitant]
     Route: 048
  4. LEVEMIR [Concomitant]
     Route: 058
  5. CARDENSIEL [Concomitant]
     Route: 048
  6. LASILIX [Concomitant]
     Route: 048

REACTIONS (3)
  - Injection site haematoma [Fatal]
  - Shock haemorrhagic [Fatal]
  - Cardiac failure [Unknown]
